FAERS Safety Report 4368345-1 (Version None)
Quarter: 2004Q2

REPORT INFORMATION
  Report Type: 
  Country: None (occurrence: None)
  Receive Date: 20040525
  Receipt Date: 20040512
  Transmission Date: 20050107
  Serious: Yes (Other)
  Sender: FDA-Public Use
  Company Number: SE-JNJFOC-20040502689

PATIENT
  Age: 20 Year
  Sex: Male

DRUGS (4)
  1. INFLIXIMAB (INFLIXIMAB, RECOMBINANT) LYOPHILIZED POWDER [Suspect]
     Indication: COLITIS ULCERATIVE
     Dosage: 5 MG/KG, INTRAVENOUS
     Route: 042
  2. AZATHIOPRINE [Concomitant]
  3. GLUCOCORTICOSTEROIDS (GLUCOCORTICOSTEROIDS) [Concomitant]
  4. METRONIDAZOLE (METRONIDAZOLE) UNSPECIFIED [Concomitant]

REACTIONS (2)
  - OFF LABEL USE [None]
  - PELVIC ABSCESS [None]
